FAERS Safety Report 16410760 (Version 1)
Quarter: 2019Q2

REPORT INFORMATION
  Report Type: Spontaneous
  Country: US (occurrence: US)
  Receive Date: 20190610
  Receipt Date: 20190610
  Transmission Date: 20190711
  Serious: Yes (Other)
  Sender: FDA-Public Use
  Company Number: US-JUBILANT CADISTA PHARMACEUTICALS-2019JUB00221

PATIENT
  Sex: Female
  Weight: 63.49 kg

DRUGS (4)
  1. MECLIZINE HYDROCHLORIDE. [Suspect]
     Active Substance: MECLIZINE HYDROCHLORIDE
     Indication: MENIERE^S DISEASE
     Dosage: 40 MG, 1X/DAY
     Route: 048
     Dates: start: 1974, end: 2019
  2. MECLIZINE HYDROCHLORIDE. [Suspect]
     Active Substance: MECLIZINE HYDROCHLORIDE
     Dosage: ^INCREASED BY 1^
     Route: 048
     Dates: start: 2019, end: 2019
  3. MECLIZINE HYDROCHLORIDE. [Suspect]
     Active Substance: MECLIZINE HYDROCHLORIDE
     Dosage: 40 MG, 1X/DAY
     Route: 048
     Dates: start: 2019, end: 201905
  4. IBRANCE [Suspect]
     Active Substance: PALBOCICLIB
     Dosage: 75 MG, 1X/DAY (21-DAY SUPPLY)
     Route: 048
     Dates: start: 201904

REACTIONS (6)
  - Drug ineffective [Not Recovered/Not Resolved]
  - Metastatic neoplasm [Not Recovered/Not Resolved]
  - Neuropathy peripheral [Not Recovered/Not Resolved]
  - Bone cancer [Unknown]
  - Meniere^s disease [Not Recovered/Not Resolved]
  - Breast cancer [Unknown]

NARRATIVE: CASE EVENT DATE: 2019
